FAERS Safety Report 4270446-3 (Version None)
Quarter: 2004Q1

REPORT INFORMATION
  Report Type: 
  Country: None (occurrence: None)
  Receive Date: 20040114
  Receipt Date: 20040102
  Transmission Date: 20041129
  Serious: Yes (Other)
  Sender: FDA-Public Use
  Company Number: US-GLAXOSMITHKLINE-A0490913A

PATIENT
  Age: 87 Year
  Sex: Female

DRUGS (1)
  1. COREG [Suspect]
     Dosage: 25MG TWICE PER DAY
     Route: 048

REACTIONS (3)
  - ARTHRALGIA [None]
  - BLINDNESS [None]
  - MUSCLE SPASMS [None]
